FAERS Safety Report 5271993-8 (Version None)
Quarter: 2007Q1

REPORT INFORMATION
  Report Type: 
  Country: None (occurrence: None)
  Receive Date: 20061214
  Receipt Date: 20060123
  Transmission Date: 20070707
  Serious: Yes (Hospitalization)
  Sender: FDA-Public Use
  Company Number: 2006012585

PATIENT
  Sex: Male

DRUGS (1)
  1. BEXTRA [Suspect]
     Indication: ILL-DEFINED DISORDER

REACTIONS (12)
  - BLOOD PRESSURE INADEQUATELY CONTROLLED [None]
  - DYSGEUSIA [None]
  - ERECTILE DYSFUNCTION [None]
  - EYE PAIN [None]
  - MANIA [None]
  - PALPITATIONS [None]
  - PROSTATIC DISORDER [None]
  - RASH [None]
  - TACHYCARDIA [None]
  - URINARY TRACT INFECTION [None]
  - VARICOSE VEIN [None]
  - VISION BLURRED [None]
